FAERS Safety Report 7581404-5 (Version None)
Quarter: 2011Q2

REPORT INFORMATION
  Report Type: 
  Country: None (occurrence: None)
  Receive Date: 20110629
  Receipt Date: 20110616
  Transmission Date: 20111010
  Serious: Yes (Other)
  Sender: FDA-Public Use
  Company Number: PHHY2010JP70179

PATIENT
  Sex: Female
  Weight: 49 kg

DRUGS (13)
  1. AFINITOR [Suspect]
     Dosage: 10MG, DAILY
     Route: 048
     Dates: start: 20100903, end: 20100905
  2. AFINITOR [Suspect]
     Dosage: 5 MG, DAILY
     Route: 048
     Dates: start: 20100913, end: 20100915
  3. ZONISAMIDE [Concomitant]
     Indication: RENAL CELL CARCINOMA
     Dosage: UNK
     Route: 048
     Dates: start: 20100513
  4. SORAFENIB TOSILATE [Concomitant]
     Indication: RENAL CELL CARCINOMA
     Dosage: 800MG
     Route: 048
     Dates: start: 20100705, end: 20100803
  5. LORAZEPAM [Concomitant]
     Indication: RENAL CELL CARCINOMA
     Dosage: UNK
     Route: 048
     Dates: start: 20100615
  6. LANSOPRAZOLE [Concomitant]
     Dosage: 15MG
     Route: 048
     Dates: start: 20100914
  7. BISOPROLOL FUMARATE [Concomitant]
     Dosage: UNK
  8. CANDESARTAN CILEXETIL W/HYDROCHLOROTHIAZIDE [Concomitant]
     Dosage: 1 DF, UNK
     Route: 048
     Dates: start: 20100818
  9. AFINITOR [Suspect]
     Indication: RENAL CELL CARCINOMA STAGE IV
     Dosage: 10 MG,DAILY
     Route: 048
     Dates: start: 20100818, end: 20100830
  10. ETODOLAC [Concomitant]
     Indication: RENAL CELL CARCINOMA
     Dosage: 200MG,DAILY
     Dates: start: 20100803
  11. DROTEBANOL [Concomitant]
     Indication: RENAL CELL CARCINOMA
  12. MUCOSOLVAN [Concomitant]
     Indication: RENAL CELL CARCINOMA
     Dosage: 45MG
     Route: 048
     Dates: start: 20100817
  13. FLOMAX [Concomitant]
     Indication: RENAL CELL CARCINOMA
     Dosage: 300MG
     Dates: start: 20100817, end: 20100823

REACTIONS (5)
  - CACHEXIA [None]
  - PROCALCITONIN INCREASED [None]
  - PYREXIA [None]
  - SEPSIS [None]
  - NEUTROPHIL COUNT INCREASED [None]
